FAERS Safety Report 9664670 (Version 1)
Quarter: 2013Q4

REPORT INFORMATION
  Report Type: Spontaneous
  Country: US (occurrence: None)
  Receive Date: 20131031
  Receipt Date: 20131031
  Transmission Date: 20140711
  Serious: Yes (Other)
  Sender: FDA-Public Use
  Company Number: None

PATIENT
  Age: 55 Year
  Sex: Female
  Weight: 61.24 kg

DRUGS (1)
  1. NASONEX [Suspect]
     Indication: RHINITIS ALLERGIC
     Dosage: 2 SPRAYS EACH NOSTRIL ONCE DAILY
     Dates: start: 20131016, end: 20131017

REACTIONS (6)
  - Hyperaesthesia [None]
  - Facial pain [None]
  - Sensitivity of teeth [None]
  - Gingival pain [None]
  - Sensation of pressure [None]
  - Neuralgia [None]
